FAERS Safety Report 5482215-7 (Version None)
Quarter: 2007Q4

REPORT INFORMATION
  Report Type: 
  Country: None (occurrence: None)
  Receive Date: 20071011
  Receipt Date: 20071010
  Transmission Date: 20080405
  Serious: Yes (Life-Threatening, Hospitalization)
  Sender: FDA-Public Use
  Company Number: HQWYE121312SEP07

PATIENT
  Age: 74 Year
  Sex: Male

DRUGS (4)
  1. INDERAL [Suspect]
     Indication: HYPERTROPHIC CARDIOMYOPATHY
     Dosage: 60 MG DAILY
     Route: 048
  2. INDERAL [Interacting]
     Indication: ATRIAL FIBRILLATION
  3. RYTHMODAN [Concomitant]
     Indication: VENTRICULAR FIBRILLATION
     Dosage: DOSE AND FREQUENCY NOT SPECIFIED
     Route: 065
  4. VASOLAN [Interacting]
     Indication: ATRIAL FIBRILLATION
     Route: 048
     Dates: start: 20061206

REACTIONS (5)
  - ATRIOVENTRICULAR BLOCK [None]
  - CARDIAC ARREST [None]
  - DRUG INTERACTION [None]
  - MEDICATION ERROR [None]
  - SHOCK [None]
